FAERS Safety Report 4716964-2 (Version None)
Quarter: 2005Q3

REPORT INFORMATION
  Report Type: 
  Country: None (occurrence: None)
  Receive Date: 20050713
  Receipt Date: 20050627
  Transmission Date: 20060218
  Serious: Yes (Hospitalization)
  Sender: FDA-Public Use
  Company Number: 2005-DE-02483GD

PATIENT
  Age: 37 Year
  Sex: Male

DRUGS (7)
  1. CLONIDINE [Suspect]
     Indication: DETOXIFICATION
     Dosage: TTS 2 FOR BP}110/70, TTS 1 FOR BP BETWEEN 80/50 AND 110/70, TD
  2. CLONIDINE HCL [Suspect]
     Indication: DETOXIFICATION
     Dosage: SEE IMAGE
  3. LORAZEPAM [Suspect]
     Indication: AGITATION
     Dosage: SEE IMAGE
  4. LORAZEPAM [Suspect]
     Indication: ANXIETY
     Dosage: SEE IMAGE
  5. LORAZEPAM [Suspect]
     Indication: MYALGIA
     Dosage: SEE IMAGE
  6. NALTREXONE HCL [Suspect]
     Indication: DETOXIFICATION
     Dosage: 12.5 MG, PO
     Route: 048
  7. SYNTHROID [Suspect]
     Indication: HYPOTHYROIDISM

REACTIONS (7)
  - AGITATION [None]
  - ANXIETY [None]
  - DELIRIUM [None]
  - MYALGIA [None]
  - NAUSEA [None]
  - PSYCHOTIC DISORDER [None]
  - VOMITING [None]
